FAERS Safety Report 21543681 (Version 2)
Quarter: 2023Q4

REPORT INFORMATION
  Report Type: Spontaneous
  Country: CA (occurrence: CA)
  Receive Date: 20221102
  Receipt Date: 20231212
  Transmission Date: 20240110
  Serious: Yes (Hospitalization, Other)
  Sender: FDA-Public Use
  Company Number: CA-BoehringerIngelheim-2020-BI-047803

PATIENT
  Age: 62 Year
  Sex: Male

DRUGS (19)
  1. MICARDIS [Suspect]
     Active Substance: TELMISARTAN
     Indication: Product used for unknown indication
     Dosage: 1 EVERY 1 DAYS
     Route: 048
  2. MICARDIS [Suspect]
     Active Substance: TELMISARTAN
     Dosage: 1 DOSAGE FORM
     Route: 048
  3. SANDOSTATIN [Suspect]
     Active Substance: OCTREOTIDE ACETATE
     Indication: Acromegaly
     Dosage: 1 EVERY 3 WEEKS
     Route: 030
  4. SANDOSTATIN [Suspect]
     Active Substance: OCTREOTIDE ACETATE
     Dosage: POWDER
     Route: 030
  5. ATORVASTATIN [Suspect]
     Active Substance: ATORVASTATIN
     Indication: Product substitution
     Dosage: 1 EVERY 1 DAYS
     Route: 048
  6. ATORVASTATIN [Suspect]
     Active Substance: ATORVASTATIN
     Dosage: 1 DOSAGE FORM
     Route: 048
  7. PANTOPRAZOLE [Suspect]
     Active Substance: PANTOPRAZOLE
     Indication: Product used for unknown indication
     Dosage: 1 EVERY 1 DAYS
     Route: 048
  8. PANTOPRAZOLE [Suspect]
     Active Substance: PANTOPRAZOLE
     Dosage: 1 DOSAGE FORM
     Route: 048
  9. VENLAFAXINE [Suspect]
     Active Substance: VENLAFAXINE HYDROCHLORIDE
     Indication: Product substitution
     Dosage: 1 EVERY 1 DAYS
     Route: 048
  10. VENLAFAXINE [Suspect]
     Active Substance: VENLAFAXINE HYDROCHLORIDE
     Dosage: 1 DOSAGE FORM
     Route: 048
  11. VENLAFAXINE HYDROCHLORIDE [Suspect]
     Active Substance: VENLAFAXINE HYDROCHLORIDE
     Indication: Product used for unknown indication
     Route: 048
  12. METFORMIN [Concomitant]
     Active Substance: METFORMIN HYDROCHLORIDE
     Indication: Product substitution
     Dosage: 2 EVERY 1 DAYS
     Route: 048
  13. METFORMIN [Concomitant]
     Active Substance: METFORMIN HYDROCHLORIDE
     Indication: Product used for unknown indication
     Dosage: 2 DOSAGE FORM
  14. DIBUCAINE HYDROCHLORIDE/ESCULIN/HYDROCORTISONE ACETATE/NEOMYCIN SULFAT [Concomitant]
     Indication: Product used for unknown indication
     Dosage: 1 EVERY 1 DAYS
     Route: 061
  15. DIBUCAINE HYDROCHLORIDE/ESCULIN/HYDROCORTISONE ACETATE/NEOMYCIN SULFAT [Concomitant]
     Dosage: 2 EVERY 1 DAYS
     Route: 061
  16. DIBUCAINE [Concomitant]
     Active Substance: DIBUCAINE
     Indication: Product used for unknown indication
     Dosage: 1 EVERY 4 HOURS
     Route: 061
  17. DIBUCAINE [Concomitant]
     Active Substance: DIBUCAINE
     Route: 061
  18. ESCULIN [Concomitant]
     Active Substance: ESCULIN
     Indication: Product used for unknown indication
     Route: 061
  19. FRAMYCETIN [Concomitant]
     Active Substance: FRAMYCETIN
     Indication: Product used for unknown indication
     Route: 061

REACTIONS (27)
  - Malaise [Recovered/Resolved]
  - Abdominal pain [Recovered/Resolved]
  - Nausea [Recovered/Resolved]
  - Decreased appetite [Recovered/Resolved]
  - Renal injury [Recovered/Resolved]
  - Haemoglobin decreased [Recovered/Resolved]
  - Abdominal distension [Recovered/Resolved]
  - Back pain [Recovered/Resolved]
  - Diverticulitis [Recovered/Resolved]
  - Dehydration [Recovered/Resolved]
  - Crohn^s disease [Recovered/Resolved]
  - Constipation [Recovered/Resolved]
  - Blood pressure increased [Recovered/Resolved]
  - Nasopharyngitis [Recovered/Resolved]
  - Needle issue [Recovered/Resolved]
  - Contusion [Recovered/Resolved]
  - Blood pressure systolic increased [Recovered/Resolved]
  - Frequent bowel movements [Recovered/Resolved]
  - Body temperature decreased [Recovered/Resolved]
  - Seizure [Recovered/Resolved]
  - Drug ineffective [Recovered/Resolved]
  - Inappropriate schedule of product administration [Recovered/Resolved]
  - Anxiety [Recovered/Resolved]
  - Injection site pain [Recovered/Resolved]
  - Blood pressure diastolic decreased [Recovered/Resolved]
  - Loss of consciousness [Recovered/Resolved]
  - Abdominal discomfort [Recovered/Resolved]
